FAERS Safety Report 10652138 (Version 1)
Quarter: 2014Q4

REPORT INFORMATION
  Report Type: Spontaneous
  Country: NL (occurrence: NL)
  Receive Date: 20141215
  Receipt Date: 20141215
  Transmission Date: 20150529
  Serious: Yes (Disabling)
  Sender: FDA-Public Use
  Company Number: NL-TEVA-527663ISR

PATIENT
  Age: 59 Year

DRUGS (4)
  1. FOLIUMZUUR TABLET 5MG [Suspect]
     Active Substance: FOLIC ACID
     Indication: HOMOCYSTINAEMIA
     Dosage: 5 MILLIGRAM DAILY; 5MG/DAY
     Route: 048
     Dates: start: 1995
  2. PYRIDOXINE HYDROCHLORIDE. [Suspect]
     Active Substance: PYRIDOXINE HYDROCHLORIDE
     Indication: HOMOCYSTINAEMIA
     Dosage: 250 MILLIGRAM DAILY; 250MG/DAY
     Route: 048
     Dates: start: 1995
  3. HYDROXYCARBAMIDE CAPSULE 500MG [Suspect]
     Active Substance: HYDROXYUREA
     Indication: THROMBOCYTOSIS
     Dosage: 1000 MILLIGRAM DAILY; 2DD1 -} 2001-} 4DD1
     Route: 048
     Dates: start: 1995
  4. ACETYLSALICYLZUUR TABLET  80MG [Concomitant]
     Indication: THROMBOCYTOSIS
     Dosage: 80MG
     Route: 048
     Dates: start: 1995

REACTIONS (13)
  - Slow response to stimuli [Not Recovered/Not Resolved]
  - Hypoaesthesia [Not Recovered/Not Resolved]
  - Cough [Not Recovered/Not Resolved]
  - Neuropathy peripheral [Not Recovered/Not Resolved]
  - Chills [Not Recovered/Not Resolved]
  - Feeling abnormal [Not Recovered/Not Resolved]
  - Hyperhidrosis [Not Recovered/Not Resolved]
  - Fatigue [Not Recovered/Not Resolved]
  - Dizziness [Not Recovered/Not Resolved]
  - Disturbance in attention [Not Recovered/Not Resolved]
  - Headache [Not Recovered/Not Resolved]
  - Nausea [Not Recovered/Not Resolved]
  - Somnolence [Not Recovered/Not Resolved]
